FAERS Safety Report 5688385-X (Version None)
Quarter: 2008Q1

REPORT INFORMATION
  Report Type: 
  Country: None (occurrence: None)
  Receive Date: 20080331
  Receipt Date: 20080325
  Transmission Date: 20080703
  Serious: Yes (Other)
  Sender: FDA-Public Use
  Company Number: US-ASTRAZENECA-2006UW11990

PATIENT
  Age: 47 Year
  Sex: Female
  Weight: 113.6 kg

DRUGS (15)
  1. SEROQUEL [Suspect]
     Indication: INSOMNIA
     Route: 048
     Dates: start: 19970101, end: 20000101
  2. SEROQUEL [Suspect]
     Indication: BIPOLAR DISORDER
     Route: 048
     Dates: start: 19970101, end: 20000101
  3. SEROQUEL [Suspect]
     Route: 048
     Dates: start: 20020101, end: 20030101
  4. SEROQUEL [Suspect]
     Route: 048
     Dates: start: 20020101, end: 20030101
  5. SEROQUEL [Suspect]
     Route: 048
     Dates: start: 20040101, end: 20060201
  6. SEROQUEL [Suspect]
     Route: 048
     Dates: start: 20040101, end: 20060201
  7. DEPAKOTE [Concomitant]
  8. ABILIFY [Concomitant]
     Dates: start: 20060101
  9. CLOZARIL [Concomitant]
     Dates: start: 19970101
  10. HALDOL [Concomitant]
     Dates: start: 19970101, end: 20000101
  11. RISPERDAL [Concomitant]
     Dates: start: 19970101, end: 20050101
  12. STELAZINE [Concomitant]
     Dates: start: 19990101
  13. FENTERMINE [Concomitant]
     Indication: WEIGHT DECREASED
  14. ZYPREXA [Concomitant]
     Dates: start: 19970101, end: 20060101
  15. GEODON [Concomitant]
     Dates: start: 20071101

REACTIONS (9)
  - CELLULITIS [None]
  - CONVULSION [None]
  - DIABETES MELLITUS [None]
  - DIABETIC COMA [None]
  - DIABETIC KETOACIDOSIS [None]
  - MIGRAINE [None]
  - NEPHROLITHIASIS [None]
  - NEUROPATHY PERIPHERAL [None]
  - SLEEP APNOEA SYNDROME [None]
